FAERS Safety Report 4313936-7 (Version None)
Quarter: 2004Q1

REPORT INFORMATION
  Report Type: 
  Country: None (occurrence: None)
  Receive Date: 20040305
  Receipt Date: 20030220
  Transmission Date: 20041129
  Serious: Yes (Death)
  Sender: FDA-Public Use
  Company Number: 2003AP04580

PATIENT
  Age: 70 Year
  Sex: Female

DRUGS (8)
  1. IRESSA [Suspect]
     Indication: LUNG ADENOCARCINOMA
     Dosage: 150 MG DAILY; PO
     Route: 048
     Dates: start: 20031206, end: 20031208
  2. TOUGHMAC E [Concomitant]
  3. ASVERIN [Concomitant]
  4. RIZE [Concomitant]
  5. PACLITAXEL [Concomitant]
  6. GEMCITABINE [Concomitant]
  7. DOCETAXEL [Concomitant]
  8. IRINOTECAN [Concomitant]

REACTIONS (4)
  - ACUTE MYOCARDIAL INFARCTION [None]
  - CARDIAC FAILURE [None]
  - MALIGNANT NEOPLASM PROGRESSION [None]
  - NON-SMALL CELL LUNG CANCER [None]
